FAERS Safety Report 10243004 (Version 2)
Quarter: 2014Q2

REPORT INFORMATION
  Report Type: Spontaneous
  Country: SE (occurrence: SE)
  Receive Date: 20140618
  Receipt Date: 20140618
  Transmission Date: 20141212
  Serious: Yes (Hospitalization)
  Sender: FDA-Public Use
  Company Number: SE-BRISTOL-MYERS SQUIBB COMPANY-20604955

PATIENT
  Sex: Male

DRUGS (6)
  1. FORXIGA [Suspect]
  2. LASIX RETARD [Concomitant]
  3. EMCONCOR [Concomitant]
  4. RAMIPRIL [Concomitant]
  5. JANUVIA [Concomitant]
  6. INSULIN [Concomitant]

REACTIONS (1)
  - Urosepsis [Unknown]
